FAERS Safety Report 5631745-3 (Version None)
Quarter: 2008Q1

REPORT INFORMATION
  Report Type: 
  Country: None (occurrence: None)
  Receive Date: 20080220
  Receipt Date: 20080211
  Transmission Date: 20080703
  Serious: Yes (Hospitalization)
  Sender: FDA-Public Use
  Company Number: US-BRISTOL-MYERS SQUIBB COMPANY-14081632

PATIENT
  Age: 49 Year
  Sex: Female

DRUGS (3)
  1. PRINIVIL [Suspect]
     Indication: HYPERTENSION
     Dosage: 1 DOSAGE FORM = 0.5 TAB
     Route: 048
  2. PRINIVIL [Suspect]
     Dosage: 1 DOSAGE FORM = 0.5 TABLET
     Route: 048
  3. METOPROLOL TARTRATE [Suspect]
     Indication: HYPERTENSION
     Dosage: 1 DOSAGE FORM = 0.5 TABLET
     Route: 048

REACTIONS (11)
  - ABDOMINAL PAIN [None]
  - BACK PAIN [None]
  - CLOSTRIDIUM DIFFICILE COLITIS [None]
  - DEHYDRATION [None]
  - DIARRHOEA [None]
  - FAECES DISCOLOURED [None]
  - GASTROENTERITIS [None]
  - HYPOTENSION [None]
  - MENORRHAGIA [None]
  - NEPHROLITHIASIS [None]
  - RENAL FAILURE [None]
